FAERS Safety Report 22844347 (Version 3)
Quarter: 2024Q1

REPORT INFORMATION
  Report Type: Spontaneous
  Country: US (occurrence: US)
  Receive Date: 20230821
  Receipt Date: 20240129
  Transmission Date: 20240410
  Serious: Yes (Death, Hospitalization)
  Sender: FDA-Public Use
  Company Number: US-PFIZER INC-PV202300142500

PATIENT
  Age: 86 Year
  Sex: Male
  Weight: 73.469 kg

DRUGS (2)
  1. VYNDAMAX [Suspect]
     Active Substance: TAFAMIDIS
     Indication: Cardiac failure
     Dosage: 61 MG
  2. VYNDAMAX [Suspect]
     Active Substance: TAFAMIDIS
     Indication: Cardiac amyloidosis
     Dosage: 20 MG
     Dates: start: 202302

REACTIONS (4)
  - Cardiac amyloidosis [Fatal]
  - Cardiac failure [Fatal]
  - Disease progression [Fatal]
  - Sepsis [Fatal]
